FAERS Safety Report 7583946-5 (Version None)
Quarter: 2011Q2

REPORT INFORMATION
  Report Type: 
  Country: None (occurrence: None)
  Receive Date: 20110630
  Receipt Date: 20110620
  Transmission Date: 20111010
  Serious: Yes (Hospitalization, Disabling, Other)
  Sender: FDA-Public Use
  Company Number: US-ELI_LILLY_AND_COMPANY-US201007000533

PATIENT
  Sex: Female

DRUGS (14)
  1. BYETTA [Suspect]
     Dosage: 10 UG, BID
  2. NEXIUM [Concomitant]
     Indication: DYSPEPSIA
  3. NAPROXEN [Concomitant]
     Indication: FIBROMYALGIA
  4. PREMARIN [Concomitant]
     Indication: HORMONE REPLACEMENT THERAPY
     Dosage: UNK
  5. NADOLOL [Concomitant]
     Indication: BLOOD PRESSURE
  6. FLEXERIL [Concomitant]
     Indication: MUSCLE SPASMS
     Dosage: UNK
  7. SIMVASTATIN [Concomitant]
     Dosage: UNK
  8. BYETTA [Suspect]
     Dosage: 5 UG, BID
     Dates: start: 20060413, end: 20090908
  9. GAVISCON                           /00237601/ [Concomitant]
     Indication: GASTROOESOPHAGEAL REFLUX DISEASE
     Dosage: UNK
     Dates: start: 19970701
  10. ZETIA [Concomitant]
     Indication: BLOOD CHOLESTEROL INCREASED
  11. ZOCOR [Concomitant]
  12. LIPITOR [Concomitant]
     Indication: BLOOD CHOLESTEROL INCREASED
  13. FUROSEMIDE [Concomitant]
     Indication: DIURETIC THERAPY
  14. DICLOFENAC SODIUM [Concomitant]
     Indication: FIBROMYALGIA
     Dosage: UNK

REACTIONS (7)
  - PANCREATIC PSEUDOCYST [None]
  - CHOLELITHIASIS [None]
  - RENAL DISORDER [None]
  - PANCREATITIS [None]
  - PANCREATITIS RELAPSING [None]
  - HEPATITIS [None]
  - PANCREATITIS ACUTE [None]
